FAERS Safety Report 8075305-6 (Version None)
Quarter: 2012Q1

REPORT INFORMATION
  Report Type: 
  Country: None (occurrence: None)
  Receive Date: 20120127
  Receipt Date: 20120116
  Transmission Date: 20120608
  Serious: Yes (Hospitalization, Other)
  Sender: FDA-Public Use
  Company Number: US-ELI_LILLY_AND_COMPANY-US201111005805

PATIENT
  Sex: Male

DRUGS (2)
  1. FORTEO [Suspect]
     Indication: OSTEOPOROSIS
     Dosage: 20 UG, QD
     Dates: start: 20110801
  2. FORTEO [Suspect]
     Dosage: 20 UG, QD

REACTIONS (5)
  - LEG AMPUTATION [None]
  - DRUG DOSE OMISSION [None]
  - PAIN IN EXTREMITY [None]
  - MALAISE [None]
  - PAIN [None]
